FAERS Safety Report 12238998 (Version 1)
Quarter: 2016Q2

REPORT INFORMATION
  Report Type: Spontaneous
  Country: US (occurrence: US)
  Receive Date: 20160405
  Receipt Date: 20160405
  Transmission Date: 20160815
  Serious: No
  Sender: FDA-Public Use
  Company Number: US-ACTELION PHARMACEUTICALS US, INC.-A-NJ2016-133404

PATIENT
  Age: 64 Year
  Sex: Female

DRUGS (12)
  1. LASIX [Concomitant]
     Active Substance: FUROSEMIDE
  2. TRAMADOL. [Concomitant]
     Active Substance: TRAMADOL
  3. LEVOXYL [Concomitant]
     Active Substance: LEVOTHYROXINE SODIUM
  4. NEXIUM [Concomitant]
     Active Substance: ESOMEPRAZOLE MAGNESIUM
  5. AMITRIPTYLINE [Concomitant]
     Active Substance: AMITRIPTYLINE
  6. POTASSIUM [Concomitant]
     Active Substance: POTASSIUM
  7. ATORVASTATIN CALCIUM. [Concomitant]
     Active Substance: ATORVASTATIN CALCIUM
  8. ROPINIROLE HCL [Concomitant]
     Active Substance: ROPINIROLE HYDROCHLORIDE
  9. GEMFIBROZIL. [Concomitant]
     Active Substance: GEMFIBROZIL
  10. NAPROSYN [Concomitant]
     Active Substance: NAPROXEN
  11. OPSUMIT [Suspect]
     Active Substance: MACITENTAN
     Indication: PULMONARY ARTERIAL HYPERTENSION
     Dosage: 10 MG, QD
     Route: 048
     Dates: start: 20160126
  12. ZOFRAN [Concomitant]
     Active Substance: ONDANSETRON HYDROCHLORIDE

REACTIONS (4)
  - Dry skin [Unknown]
  - Dizziness [Unknown]
  - Oedema peripheral [Unknown]
  - Oedema [Unknown]

NARRATIVE: CASE EVENT DATE: 201602
